FAERS Safety Report 14164561 (Version 5)
Quarter: 2022Q2

REPORT INFORMATION
  Report Type: Spontaneous
  Country: JP (occurrence: JP)
  Receive Date: 20171107
  Receipt Date: 20220505
  Transmission Date: 20220721
  Serious: Yes (Hospitalization, Other)
  Sender: FDA-Public Use
  Company Number: JP-UCBJ-CD201711358UCBPHAPROD

PATIENT
  Sex: Male

DRUGS (11)
  1. LEVETIRACETAM [Suspect]
     Active Substance: LEVETIRACETAM
     Indication: Epilepsy
     Dosage: DAILY DOSE:1000 MG
     Route: 048
     Dates: start: 20150909, end: 20160204
  2. LEVETIRACETAM [Suspect]
     Active Substance: LEVETIRACETAM
     Dosage: DAILY DOSE:2000 MG
     Route: 048
     Dates: start: 20160205, end: 20160513
  3. LEVETIRACETAM [Suspect]
     Active Substance: LEVETIRACETAM
     Dosage: DAILY DOSE:3000 MG
     Route: 048
     Dates: start: 20160514
  4. LEVETIRACETAM [Suspect]
     Active Substance: LEVETIRACETAM
     Dosage: DAILY DOSE:3000 MG
     Route: 048
     Dates: start: 20171019, end: 20171023
  5. LEVETIRACETAM [Suspect]
     Active Substance: LEVETIRACETAM
     Indication: Epilepsy
     Dosage: UNK
     Route: 041
  6. FYCOMPA [Suspect]
     Active Substance: PERAMPANEL
     Indication: Epilepsy
     Dosage: DAILY DOSE: 2 MG
     Route: 048
     Dates: start: 20171019, end: 20171023
  7. FYCOMPA [Suspect]
     Active Substance: PERAMPANEL
     Dosage: 10 MILLIGRAM
  8. TEGRETOL [Suspect]
     Active Substance: CARBAMAZEPINE
     Indication: Epilepsy
     Dosage: 200 MG DAILY
     Route: 048
     Dates: start: 20160514
  9. TEGRETOL [Suspect]
     Active Substance: CARBAMAZEPINE
     Dosage: 200 MG DAILY
     Route: 048
     Dates: start: 20171019, end: 20171023
  10. DIAZEPAM [Concomitant]
     Active Substance: DIAZEPAM
     Indication: Seizure
     Dosage: 5 MILLIGRAM
     Route: 042
     Dates: start: 20171018, end: 20171018
  11. MIDAZOLAM HYDROCHLORIDE [Concomitant]
     Active Substance: MIDAZOLAM HYDROCHLORIDE
     Indication: Seizure
     Dosage: UNK

REACTIONS (3)
  - Rhabdomyolysis [Recovered/Resolved]
  - Epilepsy [Unknown]
  - Acute kidney injury [Recovered/Resolved]

NARRATIVE: CASE EVENT DATE: 20160101
